FAERS Safety Report 7310739-6 (Version None)
Quarter: 2011Q1

REPORT INFORMATION
  Report Type: 
  Country: None (occurrence: None)
  Receive Date: 20110224
  Receipt Date: 20110214
  Transmission Date: 20110831
  Serious: Yes (Other)
  Sender: FDA-Public Use
  Company Number: PHHY2009JP23558

PATIENT
  Age: 8 Year
  Sex: Male

DRUGS (6)
  1. NEORAL [Suspect]
     Indication: NEPHROTIC SYNDROME
     Dosage: 120 MG
     Route: 048
  2. ERYTHROMYCIN [Interacting]
     Indication: PARAPSORIASIS
     Dosage: 810 MG
     Dates: start: 20070216, end: 20070313
  3. ERYTHROMYCIN [Interacting]
     Dosage: 270 MG
  4. TETRAMYCIN [Concomitant]
     Dosage: UNK
     Dates: start: 20070313
  5. PREDNISOLONE [Concomitant]
     Dosage: 5 MG,
  6. ERYTHROMYCIN [Interacting]
     Dosage: 200 MG

REACTIONS (15)
  - RENAL IMPAIRMENT [None]
  - SCAB [None]
  - DRUG LEVEL INCREASED [None]
  - BLISTER [None]
  - BLOOD CREATININE INCREASED [None]
  - BLOOD BLISTER [None]
  - SKIN ULCER [None]
  - ERYTHEMA [None]
  - BLOOD UREA INCREASED [None]
  - PITYRIASIS LICHENOIDES ET VARIOLIFORMIS ACUTA [None]
  - RASH [None]
  - DRUG INTERACTION [None]
  - LYMPHOCYTIC INFILTRATION [None]
  - RASH PRURITIC [None]
  - RASH PAPULAR [None]
